FAERS Safety Report 9191652 (Version 1)
Quarter: 2013Q1

REPORT INFORMATION
  Report Type: Spontaneous
  Country: FR (occurrence: FR)
  Receive Date: 20130326
  Receipt Date: 20130326
  Transmission Date: 20140127
  Serious: Yes (Hospitalization)
  Sender: FDA-Public Use
  Company Number: FR-TEVA-394611USA

PATIENT
  Age: 53 Year
  Sex: Female

DRUGS (14)
  1. BENDAMUSTINE [Suspect]
     Indication: CHRONIC LYMPHOCYTIC LEUKAEMIA
     Dosage: 2.5 NG/ML, REGIMEN #1
     Dates: start: 20130102
  2. BENDAMUSTINE [Suspect]
     Indication: PROLYMPHOCYTIC LEUKAEMIA
     Dosage: REGIMEN #2
     Route: 041
     Dates: start: 20130103
  3. BENDAMUSTINE [Suspect]
     Indication: LYMPHOCYTIC LYMPHOMA
  4. EMEND [Suspect]
     Indication: PROPHYLAXIS OF NAUSEA AND VOMITING
     Dosage: UID/QD, REGIMEN #1
     Route: 048
     Dates: start: 20130103
  5. EUPANTOL [Suspect]
     Indication: PROPHYLAXIS AGAINST GASTROINTESTINAL ULCER
     Dosage: REGIMEN #1
     Route: 042
  6. RITUXIMAB [Concomitant]
     Indication: CHRONIC LYMPHOCYTIC LEUKAEMIA
     Dates: start: 20130102, end: 20130103
  7. RITUXIMAB [Concomitant]
     Indication: PROLYMPHOCYTIC LEUKAEMIA
  8. RITUXIMAB [Concomitant]
     Indication: LYMPHOCYTIC LYMPHOMA
  9. TRAMADOL [Concomitant]
  10. BACTRIM [Concomitant]
  11. ZELITREX [Concomitant]
  12. PROPANOLOL [Concomitant]
  13. ZOPHREN [Concomitant]
  14. PLITICAN [Concomitant]

REACTIONS (1)
  - Hepatocellular injury [Recovering/Resolving]
